FAERS Safety Report 12298997 (Version 1)
Quarter: 2016Q2

REPORT INFORMATION
  Report Type: Report from Study
  Country: US (occurrence: US)
  Receive Date: 20160425
  Receipt Date: 20160425
  Transmission Date: 20160815
  Serious: No
  Sender: FDA-Public Use
  Company Number: US-AMGEN-USASL2016048375

PATIENT
  Age: 38 Year
  Sex: Female

DRUGS (2)
  1. METHOTREXATE [Concomitant]
     Active Substance: METHOTREXATE
     Dosage: UNK
     Dates: start: 2016
  2. ENBREL [Suspect]
     Active Substance: ETANERCEPT
     Indication: PRODUCT USED FOR UNKNOWN INDICATION
     Dosage: 50 MG, QWK
     Route: 065
     Dates: start: 20160318

REACTIONS (8)
  - Injection site induration [Recovered/Resolved]
  - Dizziness [Unknown]
  - Injection site erythema [Unknown]
  - Mydriasis [Unknown]
  - Injection site pain [Unknown]
  - Injection site pruritus [Unknown]
  - Feeling abnormal [Unknown]
  - Injection site warmth [Recovered/Resolved]

NARRATIVE: CASE EVENT DATE: 2016
